FAERS Safety Report 4721890-9 (Version None)
Quarter: 2005Q3

REPORT INFORMATION
  Report Type: 
  Country: None (occurrence: None)
  Receive Date: 20050721
  Receipt Date: 20050531
  Transmission Date: 20060218
  Serious: No
  Sender: FDA-Public Use
  Company Number: US-BRISTOL-MYERS SQUIBB COMPANY-12986709

PATIENT
  Age: 79 Year
  Sex: Male
  Weight: 84 kg

DRUGS (9)
  1. COUMADIN [Suspect]
     Indication: ATRIAL FIBRILLATION
     Dosage: ON RX LAST 2 MONTHS; TAKING 7.5MG X 5/WEEK + 5MG X 2/WEEK; USING SAMPLES OF 5MG COUMADIN
     Route: 048
     Dates: start: 20050401
  2. ACEBUTOLOL [Concomitant]
  3. DIGOXIN [Concomitant]
  4. OMEPRAZOLE [Concomitant]
  5. PAROXETINE HCL [Concomitant]
  6. PLAVIX [Concomitant]
  7. QUINIDINE HCL [Concomitant]
  8. TERAZOSIN HCL [Concomitant]
  9. TRAMADOL HCL [Concomitant]

REACTIONS (1)
  - DIARRHOEA [None]
